FAERS Safety Report 4544155-7 (Version None)
Quarter: 2005Q1

REPORT INFORMATION
  Report Type: 
  Country: None (occurrence: None)
  Receive Date: 20050104
  Receipt Date: 20041202
  Transmission Date: 20050727
  Serious: Yes (Hospitalization, Disabling)
  Sender: FDA-Public Use
  Company Number: JP-GLAXOSMITHKLINE-B0358929A

PATIENT
  Age: 58 Year
  Sex: Male

DRUGS (7)
  1. FLOLAN [Suspect]
     Indication: PULMONARY HYPERTENSION
     Route: 042
     Dates: start: 20040705
  2. WARFARIN POTASSIUM [Concomitant]
  3. FUROSEMIDE [Concomitant]
  4. SPIRONOLACTONE [Concomitant]
  5. DIGOXIN [Concomitant]
  6. THEO-DUR [Concomitant]
  7. VIAGRA [Concomitant]

REACTIONS (5)
  - CARCINOMA EXCISION [None]
  - CARDIAC FAILURE [None]
  - MALAISE [None]
  - MUSCLE ATROPHY [None]
  - VENTRICULAR HYPERTROPHY [None]
